FAERS Safety Report 7778646-2 (Version None)
Quarter: 2011Q3

REPORT INFORMATION
  Report Type: 
  Country: None (occurrence: None)
  Receive Date: 20110926
  Receipt Date: 20110916
  Transmission Date: 20111222
  Serious: Yes (Death, Other)
  Sender: FDA-Public Use
  Company Number: US-BAYER-201041761NA

PATIENT
  Age: 57 Year
  Sex: Male

DRUGS (8)
  1. LOPRESSOR [Concomitant]
     Dosage: UNK UNK, QD
     Route: 048
  2. PREVACID [Concomitant]
     Dosage: UNK
     Dates: start: 20061023
  3. TRASYLOL [Suspect]
     Indication: HEART VALVE REPLACEMENT
     Dosage: UNK
     Dates: start: 20061023
  4. TRASYLOL [Suspect]
     Indication: CORONARY ARTERY BYPASS
  5. CORDARONE [Concomitant]
     Dosage: UNK UNK, QD
     Route: 048
  6. TRASYLOL [Suspect]
     Indication: AORTIC VALVE REPAIR
  7. MORPHINE [Concomitant]
     Dosage: UNK
     Dates: start: 20061024
  8. ALBUTEROL [Concomitant]
     Dosage: UNK
     Dates: start: 20061023

REACTIONS (11)
  - MULTI-ORGAN FAILURE [None]
  - RENAL IMPAIRMENT [None]
  - PAIN [None]
  - EMOTIONAL DISTRESS [None]
  - DEATH [None]
  - RENAL FAILURE [None]
  - RENAL INJURY [None]
  - STRESS [None]
  - FEAR [None]
  - ANXIETY [None]
  - UNEVALUABLE EVENT [None]
